FAERS Safety Report 17498939 (Version 8)
Quarter: 2020Q3

REPORT INFORMATION
  Report Type: Spontaneous
  Country: US (occurrence: US)
  Receive Date: 20200304
  Receipt Date: 20200716
  Transmission Date: 20201102
  Serious: Yes (Other)
  Sender: FDA-Public Use
  Company Number: NVSC2020US057389

PATIENT
  Age: 61 Year
  Sex: Female

DRUGS (3)
  1. BEOVU [Suspect]
     Active Substance: BROLUCIZUMAB-DBLL
     Dosage: 6 MG, QMO
     Route: 047
     Dates: start: 20200117, end: 20200221
  2. BEOVU [Suspect]
     Active Substance: BROLUCIZUMAB-DBLL
     Indication: NEOVASCULAR AGE-RELATED MACULAR DEGENERATION
     Dosage: 6 MG, QMO IN BOTH EYES
     Route: 047
     Dates: start: 20200117
  3. EYLEA [Suspect]
     Active Substance: AFLIBERCEPT
     Indication: NEOVASCULAR AGE-RELATED MACULAR DEGENERATION
     Dosage: UNK
     Route: 031
     Dates: start: 20191213

REACTIONS (5)
  - Vision blurred [Unknown]
  - Uveitis [Recovering/Resolving]
  - Vitreous floaters [Unknown]
  - Blindness unilateral [Unknown]
  - Retinal vasculitis [Recovered/Resolved]

NARRATIVE: CASE EVENT DATE: 20200202
